FAERS Safety Report 6247269-9 (Version None)
Quarter: 2009Q2

REPORT INFORMATION
  Report Type: 
  Country: None (occurrence: None)
  Receive Date: 20090626
  Receipt Date: 20090616
  Transmission Date: 20091009
  Serious: Yes (Congenital Anomaly)
  Sender: FDA-Public Use
  Company Number: A0748058A

PATIENT
  Sex: Female

DRUGS (7)
  1. PAXIL [Suspect]
     Indication: DEPRESSION
     Dosage: 20MG PER DAY
     Dates: start: 20020801, end: 20030101
  2. VITAMIN TAB [Concomitant]
  3. PROTON PUMP INHIBITOR [Concomitant]
  4. CARAFATE [Concomitant]
  5. DEMEROL [Concomitant]
  6. PEPCID [Concomitant]
  7. ANTIEMETIC [Concomitant]

REACTIONS (4)
  - CARDIAC MURMUR [None]
  - CONGENITAL ANOMALY [None]
  - DRUG EXPOSURE DURING PREGNANCY [None]
  - VENTRICULAR SEPTAL DEFECT [None]
